FAERS Safety Report 10223667 (Version 2)
Quarter: 2014Q2

REPORT INFORMATION
  Report Type: Spontaneous
  Country: US (occurrence: US)
  Receive Date: 20140609
  Receipt Date: 20140609
  Transmission Date: 20141212
  Serious: No
  Sender: FDA-Public Use
  Company Number: US-DRREDDYS-USA/USA/14/0037624

PATIENT
  Age: 78 Year
  Sex: Male

DRUGS (1)
  1. MUCINEX ALLERGY (FEXOFENADINE) [Suspect]
     Indication: INFLUENZA
     Route: 065
     Dates: end: 2014

REACTIONS (5)
  - Extra dose administered [Unknown]
  - Hypersomnia [Recovered/Resolved]
  - Dry mouth [Recovered/Resolved]
  - Accidental exposure to product [Unknown]
  - Product quality issue [Unknown]
